FAERS Safety Report 7114094-6 (Version None)
Quarter: 2010Q4

REPORT INFORMATION
  Report Type: 
  Country: None (occurrence: None)
  Receive Date: 20101119
  Receipt Date: 20100813
  Transmission Date: 20110411
  Serious: Yes (Other)
  Sender: FDA-Public Use
  Company Number: US-BAYER-201030431NA

PATIENT
  Age: 35 Year
  Sex: Male
  Weight: 137 kg

DRUGS (13)
  1. MAGNEVIST [Suspect]
     Indication: NUCLEAR MAGNETIC RESONANCE IMAGING BRAIN
     Dosage: TOTAL DAILY DOSE: 20 ML
     Route: 042
     Dates: start: 20011220, end: 20011220
  2. MAGNEVIST [Suspect]
     Route: 042
     Dates: start: 20011031, end: 20011031
  3. GLUCOPHAGE [Concomitant]
  4. AVENA [Concomitant]
  5. HYZAAR [Concomitant]
     Indication: HYPERTENSION
     Dosage: AS USED: 100/25 MG
     Dates: start: 20061128
  6. PRINIVIL [Concomitant]
     Indication: HYPERTENSION
     Dates: start: 20061128
  7. MICRONASE [Concomitant]
     Indication: DIABETES MELLITUS
     Dosage: 5 MG
     Dates: start: 20061128
  8. GLIMEPIRIDE [Concomitant]
     Indication: DIABETES MELLITUS
     Dosage: TOTAL DAILY DOSE: 8 MG
     Route: 048
  9. LANTUS [Concomitant]
     Indication: DIABETES MELLITUS
     Dosage: 100 IU/L ONCE DAILY
     Route: 058
  10. DIOVAN [Concomitant]
     Indication: HYPERTENSION
     Dosage: TOTAL DAILY DOSE: 320 MG
     Route: 048
  11. LORTAB [Concomitant]
     Dosage: 7.5/500 MG
     Route: 048
  12. EPOGEN [Concomitant]
     Indication: ANAEMIA
  13. IRON [Concomitant]
     Indication: ANAEMIA

REACTIONS (9)
  - ARTHRALGIA [None]
  - HYPOAESTHESIA [None]
  - NEPHROGENIC SYSTEMIC FIBROSIS [None]
  - OEDEMA PERIPHERAL [None]
  - PARAESTHESIA [None]
  - PRURITUS [None]
  - SKIN EXFOLIATION [None]
  - SKIN INDURATION [None]
  - SKIN TIGHTNESS [None]
